FAERS Safety Report 8361173-1 (Version None)
Quarter: 2012Q1

REPORT INFORMATION
  Report Type: 
  Country: None (occurrence: None)
  Receive Date: 20120323
  Receipt Date: 20111209
  Transmission Date: 20120608
  Serious: Yes (Other)
  Sender: FDA-Public Use
  Company Number: 163-21880-11040116

PATIENT
  Age: 81 Year
  Sex: Female
  Weight: 87.0906 kg

DRUGS (15)
  1. REVLIMID [Suspect]
     Dosage: 25 MG, DAILY  X 21 DAYS, PO, 10MG-15MG, DAILY, PO
     Route: 048
     Dates: start: 20110301
  2. REVLIMID [Suspect]
     Dosage: 25 MG, DAILY  X 21 DAYS, PO, 10MG-15MG, DAILY, PO
     Route: 048
     Dates: start: 20110209
  3. ADVAIR(SERETIDE MITE)(UNKNOWN) [Concomitant]
  4. METOPROLOL TARTRATE [Concomitant]
  5. SPECTRAVITE(MULTIVITAMINS WITH MINERALS)(UNKNOWN) [Concomitant]
  6. DEXAMETHASONE [Concomitant]
  7. CARTIA(ACETYLSALICYLIC ACID)(UNKNOWN) [Concomitant]
  8. WARFARIN SODIUM [Concomitant]
  9. FAMCICLOVIR(FAMCICLOVIR)(UNKNOWN) [Concomitant]
  10. LEVOTHYROXINE SODIUM [Concomitant]
  11. CALCIUM(CALCIUM)(UNKNOWN) [Concomitant]
  12. FERROUS SULFATE TAB [Concomitant]
  13. VELCADE [Concomitant]
  14. WOMEN'S VITAMINS(MULTIVITAMINS)(UNKNOWN) [Concomitant]
  15. VITAMIN D(ERGOCALCIFEROL)(UNKNOWN) [Concomitant]

REACTIONS (9)
  - TREMOR [None]
  - MONOCLONAL IMMUNOGLOBULIN PRESENT [None]
  - FATIGUE [None]
  - GAIT DISTURBANCE [None]
  - FALL [None]
  - BALANCE DISORDER [None]
  - RIB FRACTURE [None]
  - NAUSEA [None]
  - DRUG INEFFECTIVE [None]
